FAERS Safety Report 18311681 (Version 1)
Quarter: 2020Q3

REPORT INFORMATION
  Report Type: Spontaneous
  Country: US (occurrence: US)
  Receive Date: 20200925
  Receipt Date: 20200925
  Transmission Date: 20201103
  Serious: Yes (Hospitalization, Other)
  Sender: FDA-Public Use
  Company Number: US-MACLEODS PHARMACEUTICALS US LTD-MAC2020028152

PATIENT

DRUGS (7)
  1. LOSARTAN. [Suspect]
     Active Substance: LOSARTAN
     Indication: HYPERTENSION
     Dosage: UNK
     Route: 065
  2. DEXTROSE. [Concomitant]
     Active Substance: DEXTROSE
     Indication: MYELODYSPLASTIC SYNDROME
  3. 765IGF?METHOTREXATE [Concomitant]
     Active Substance: METHOTREXATE
     Indication: DISEASE PROGRESSION
     Dosage: 6 CYCLE, 0.20MCGEQ/KG, 90?MIN IV INFUSION 250 ML
     Route: 042
     Dates: start: 201802, end: 2018
  4. INSULIN?LIKE GROWTH FACTOR I [Concomitant]
     Indication: DISEASE PROGRESSION
     Dosage: 6 CYCLE, 0.20 MCGEQ/KG, 765IGF?MTX GIVEN 90?MIN IV INFUSION 250 ML
     Route: 042
     Dates: start: 201802, end: 2018
  5. 765IGF?METHOTREXATE [Concomitant]
     Active Substance: METHOTREXATE
     Indication: MYELODYSPLASTIC SYNDROME
  6. INSULIN?LIKE GROWTH FACTOR I [Concomitant]
     Indication: MYELODYSPLASTIC SYNDROME
  7. DEXTROSE. [Concomitant]
     Active Substance: DEXTROSE
     Indication: DISEASE PROGRESSION
     Dosage: 250 MILLILITER, 6 CYCLE, 90?MIN IV INFUSION IN 250 ML OF 5% DEXTROSE ON DAYS 1, 8, AND 15 OF A FOUR?
     Route: 042
     Dates: start: 201802, end: 2018

REACTIONS (1)
  - Orthostatic hypotension [Unknown]

NARRATIVE: CASE EVENT DATE: 2018
